FAERS Safety Report 8046910 (Version 2)
Quarter: 2012Q4

REPORT INFORMATION
  Report Type: 
  Country: US (occurrence: US)
  Receive Date: 20110721
  Receipt Date: 20121116
  Transmission Date: 20130627
  Serious: Yes (Other)
  Sender: FDA-Public Use
  Company Number: US-RANBAXY-2011US-45244

PATIENT
  Sex: Female
  Weight: 86 kg

DRUGS (4)
  1. VERAPAMIL [Suspect]
     Indication: SUPRAVENTRICULAR TACHYCARDIA
     Dosage: UNK
     Route: 065
     Dates: start: 201103, end: 20110601
  2. CALAN SR (VERAPAMIL) [Concomitant]
     Indication: ARRHYTHMIA
     Dosage: 120 mg, bid
     Route: 065
     Dates: start: 1991
  3. CALAN SR (VERAPAMIL) [Concomitant]
     Dosage: 120 mg, UNK
     Route: 065
     Dates: start: 20110601
  4. SYNTHROID [Concomitant]
     Indication: PRODUCT USED FOR UNKNOWN INDICATION
     Dosage: UNK
     Route: 065

REACTIONS (5)
  - Loss of consciousness [Recovered/Resolved]
  - Dyspnoea [Recovered/Resolved]
  - Fatigue [Recovered/Resolved]
  - Dizziness [Recovered/Resolved]
  - Drug ineffective [Unknown]
